FAERS Safety Report 5420052-X (Version None)
Quarter: 2007Q3

REPORT INFORMATION
  Report Type: 
  Country: None (occurrence: None)
  Receive Date: 20070820
  Receipt Date: 20070808
  Transmission Date: 20080115
  Serious: Yes (Other)
  Sender: FDA-Public Use
  Company Number: US-PFIZER INC-2007066689

PATIENT
  Sex: Male
  Weight: 89.4 kg

DRUGS (1)
  1. CHANTIX [Suspect]
     Indication: EX-SMOKER
     Dates: start: 20070501, end: 20070701

REACTIONS (4)
  - ABDOMINAL PAIN LOWER [None]
  - CONSTIPATION [None]
  - GASTROINTESTINAL DISORDER [None]
  - INFECTION [None]
